FAERS Safety Report 9815634 (Version 3)
Quarter: 2014Q2

REPORT INFORMATION
  Report Type: Report from Study
  Country: JP (occurrence: JP)
  Receive Date: 20140114
  Receipt Date: 20140626
  Transmission Date: 20141212
  Serious: Yes (Hospitalization, Other)
  Sender: FDA-Public Use
  Company Number: JP-PFIZER INC-2014007189

PATIENT
  Age: 44 Year
  Sex: Female
  Weight: 53 kg

DRUGS (19)
  1. ADRIACIN [Suspect]
     Indication: ADULT T-CELL LYMPHOMA/LEUKAEMIA
     Route: 041
  2. POTELIGEO [Suspect]
     Indication: ADULT T-CELL LYMPHOMA/LEUKAEMIA
     Dosage: 1 MG/KG, WEEKLY
     Route: 041
     Dates: start: 20121017, end: 20121108
  3. POTELIGEO [Suspect]
     Dosage: 1 MG/KG, WEEKLY
     Route: 041
     Dates: start: 20121126, end: 20121207
  4. ACETAMINOPHEN [Concomitant]
     Indication: PROPHYLAXIS
     Dosage: 1X/WEEK
     Dates: start: 20121017, end: 20121108
  5. ACETAMINOPHEN [Concomitant]
     Dosage: 1X/WEEK
     Dates: start: 20121126, end: 20121207
  6. SOLU-CORTEF [Concomitant]
     Indication: PROPHYLAXIS
     Dosage: 100 MG, 1X/WEEK
     Dates: start: 20121017, end: 20121108
  7. SOLU-CORTEF [Concomitant]
     Dosage: 100 MG, 1X/WEEK
     Dates: start: 20121126, end: 20121207
  8. ALLEGRA [Concomitant]
     Indication: PROPHYLAXIS
     Dosage: 1X/WEEK
     Route: 048
     Dates: start: 20121017, end: 20121108
  9. ALLEGRA [Concomitant]
     Dosage: 1X/WEEK
     Route: 048
     Dates: start: 20121126, end: 20121207
  10. BAKTAR [Concomitant]
     Indication: INFECTION PROPHYLAXIS
     Dosage: UNK
     Route: 048
     Dates: start: 20120126, end: 20130619
  11. ITRIZOLE [Concomitant]
     Indication: INFECTION PROPHYLAXIS
     Dosage: UNK
     Route: 048
     Dates: start: 20120509, end: 20121226
  12. DEXAMETHASONE [Concomitant]
     Indication: ADULT T-CELL LYMPHOMA/LEUKAEMIA
  13. ETOPOSIDE [Concomitant]
     Indication: ADULT T-CELL LYMPHOMA/LEUKAEMIA
  14. IFOSFAMIDE [Concomitant]
     Indication: ADULT T-CELL LYMPHOMA/LEUKAEMIA
     Route: 041
  15. CARBOPLATIN [Concomitant]
     Indication: ADULT T-CELL LYMPHOMA/LEUKAEMIA
     Route: 041
  16. IRINOTECAN HYDROCHLORIDE HYDRATE [Concomitant]
     Indication: ADULT T-CELL LYMPHOMA/LEUKAEMIA
     Route: 041
  17. DENOSINE [Concomitant]
     Dosage: UNK
     Dates: start: 20121210, end: 20121218
  18. FOSCAVIR [Concomitant]
     Dosage: UNK
     Dates: start: 20130314, end: 20130510
  19. VALIXA [Concomitant]
     Dosage: UNK
     Dates: start: 20130517, end: 20130605

REACTIONS (4)
  - Cytomegalovirus viraemia [Not Recovered/Not Resolved]
  - Systemic candida [Recovering/Resolving]
  - Mycotic endophthalmitis [Recovered/Resolved]
  - Neutropenia [Recovered/Resolved]
